FAERS Safety Report 9200334 (Version 5)
Quarter: 2013Q3

REPORT INFORMATION
  Report Type: Report from Study
  Country: JP (occurrence: JP)
  Receive Date: 20130329
  Receipt Date: 20130910
  Transmission Date: 20140515
  Serious: Yes (Hospitalization)
  Sender: FDA-Public Use
  Company Number: JP-B.I. PHARMACEUTICALS,INC./RIDGEFIELD-2013-BI-08289NB

PATIENT
  Age: 82 Year
  Sex: Male
  Weight: 44 kg

DRUGS (8)
  1. TRAZENTA [Suspect]
     Indication: TYPE 2 DIABETES MELLITUS
     Dosage: 5 MG
     Route: 048
     Dates: start: 20130226, end: 20130309
  2. FEBURIC [Concomitant]
     Dosage: 10 MG
     Route: 048
  3. BLOPRESS [Concomitant]
     Dosage: 4 MG
     Route: 048
  4. BAYASPIRIN [Concomitant]
     Dosage: 100 MG
     Route: 048
  5. DIART [Concomitant]
     Dosage: 30 MG
     Route: 048
  6. FLUITRAN [Concomitant]
     Dosage: 2 MG
     Route: 048
  7. WARFARIN [Concomitant]
     Dosage: 1 MG
     Route: 048
  8. PARIET [Concomitant]
     Dosage: 10 MG
     Route: 048
     Dates: start: 20130123

REACTIONS (1)
  - Intestinal obstruction [Recovered/Resolved]
